FAERS Safety Report 15411868 (Version 1)
Quarter: 2018Q3

REPORT INFORMATION
  Report Type: Spontaneous
  Country: US (occurrence: US)
  Receive Date: 20180913
  Receipt Date: 20180913
  Transmission Date: 20181010
  Serious: Yes (Hospitalization)
  Sender: FDA-Public Use
  Company Number: None

PATIENT
  Age: 26 Year
  Sex: Female

DRUGS (4)
  1. URSODIOL. [Concomitant]
     Active Substance: URSODIOL
  2. FERROUS GLUCONATE TABS 324 MG TABS [Suspect]
     Active Substance: FERROUS GLUCONATE
     Indication: CYSTIC FIBROSIS
     Route: 048
     Dates: start: 20170103
  3. SCANDISHAKE [Concomitant]
     Active Substance: DIETARY SUPPLEMENT
  4. LANTUS SOLOSTAR [Concomitant]
     Active Substance: INSULIN GLARGINE

REACTIONS (2)
  - Nausea [None]
  - Vomiting [None]

NARRATIVE: CASE EVENT DATE: 20180909
